FAERS Safety Report 9775755 (Version 1)
Quarter: 2013Q4

REPORT INFORMATION
  Report Type: Other
  Country: CH (occurrence: CH)
  Receive Date: 20131220
  Receipt Date: 20131220
  Transmission Date: 20140711
  Serious: Yes (Other)
  Sender: FDA-Public Use
  Company Number: CH-BRISTOL-MYERS SQUIBB COMPANY-19929538

PATIENT
  Age: 64 Year
  Sex: Male
  Weight: 75 kg

DRUGS (1)
  1. YERVOY [Suspect]
     Indication: MALIGNANT MELANOMA
     Dates: start: 201205, end: 201207

REACTIONS (1)
  - Pleural effusion [Unknown]
